FAERS Safety Report 14294242 (Version 1)
Quarter: 2017Q4

REPORT INFORMATION
  Report Type: Spontaneous
  Country: US (occurrence: US)
  Receive Date: 20171217
  Receipt Date: 20171217
  Transmission Date: 20180321
  Serious: Yes (Death)
  Sender: FDA-Public Use
  Company Number: US-SA-2017SA254431

PATIENT
  Age: 8 Month
  Sex: Male

DRUGS (1)
  1. DIPHENHYDRAMINE. [Suspect]
     Active Substance: DIPHENHYDRAMINE
     Indication: IRRITABILITY
     Route: 048

REACTIONS (6)
  - Cyanosis [Fatal]
  - Toxicity to various agents [Fatal]
  - Postmortem blood drug level increased [Fatal]
  - Chills [Fatal]
  - Drug screen positive [Fatal]
  - Muscle rigidity [Fatal]
